FAERS Safety Report 4650007-4 (Version None)
Quarter: 2005Q2

REPORT INFORMATION
  Report Type: 
  Country: None (occurrence: None)
  Receive Date: 20050428
  Receipt Date: 20050415
  Transmission Date: 20051028
  Serious: Yes (Other)
  Sender: FDA-Public Use
  Company Number: 2005026443

PATIENT
  Age: 17 Year
  Sex: Female

DRUGS (2)
  1. ALDACTONE [Suspect]
     Indication: NEPHROTIC SYNDROME
     Dosage: 25 MG DAILY
  2. DRUG, UNSPECIFIED (DRUG, UNSPECIFIED) [Suspect]
     Indication: ILL-DEFINED DISORDER

REACTIONS (4)
  - DRUG HYPERSENSITIVITY [None]
  - DRUG RASH WITH EOSINOPHILIA AND SYSTEMIC SYMPTOMS [None]
  - SKIN TEST POSITIVE [None]
  - TOXIC SKIN ERUPTION [None]
